FAERS Safety Report 6254756-6 (Version None)
Quarter: 2009Q3

REPORT INFORMATION
  Report Type: 
  Country: None (occurrence: None)
  Receive Date: 20090702
  Receipt Date: 20090625
  Transmission Date: 20100115
  Serious: Yes (Hospitalization, Other)
  Sender: FDA-Public Use
  Company Number: BE-ELI_LILLY_AND_COMPANY-BE200901004266

PATIENT
  Sex: Female
  Weight: 49 kg

DRUGS (2)
  1. FORTEO [Suspect]
     Indication: OSTEOPOROSIS
     Dosage: 20 UG, DAILY (1/D)
     Route: 058
     Dates: start: 20080926, end: 20090301
  2. ANTIBIOTICS [Concomitant]
     Indication: ULCER
     Dosage: UNK, UNKNOWN
     Route: 065

REACTIONS (3)
  - DIARRHOEA HAEMORRHAGIC [None]
  - MELAENA [None]
  - WEIGHT DECREASED [None]
